FAERS Safety Report 8804699 (Version 1)
Quarter: 2012Q4

REPORT INFORMATION
  Report Type: 
  Country: US (occurrence: US)
  Receive Date: 20120924
  Receipt Date: 20120924
  Transmission Date: 20130627
  Serious: No
  Sender: FDA-Public Use
  Company Number: US-VERTEX PHARMACEUTICAL INC.-2012-020922

PATIENT
  Age: 68 None
  Sex: Male
  Weight: 81 kg

DRUGS (7)
  1. INCIVEK [Suspect]
     Indication: HEPATITIS C
     Dosage: 750 mg, UNK
     Route: 048
     Dates: start: 20120808
  2. PEGASYS [Concomitant]
     Indication: HEPATITIS C
     Dosage: 180 ?g, UNK
     Route: 058
     Dates: start: 20120808
  3. RIBAVIRIN [Concomitant]
     Indication: HEPATITIS C
     Dosage: UNK
     Dates: start: 20120808
  4. LEVITRA [Concomitant]
     Indication: ERECTILE DYSFUNCTION
     Dosage: 20 mg, UNK
     Route: 048
  5. FISH OIL [Concomitant]
     Indication: MEDICAL DIET
  6. MULTIPLE VITAMINS [Concomitant]
     Indication: MEDICAL DIET
  7. VITAMIN E                          /00110501/ [Concomitant]
     Indication: MEDICAL DIET

REACTIONS (5)
  - Inappropriate schedule of drug administration [Recovered/Resolved]
  - Influenza like illness [Recovered/Resolved]
  - Anorectal discomfort [Not Recovered/Not Resolved]
  - Diarrhoea [Recovered/Resolved]
  - Nausea [Recovered/Resolved]
